FAERS Safety Report 13070958 (Version 1)
Quarter: 2016Q4

REPORT INFORMATION
  Report Type: Spontaneous
  Country: GB (occurrence: GB)
  Receive Date: 20161229
  Receipt Date: 20161229
  Transmission Date: 20170207
  Serious: Yes (Other)
  Sender: FDA-Public Use
  Company Number: GB-AUROBINDO-AUR-APL-2016-15798

PATIENT
  Sex: Male

DRUGS (1)
  1. QUETIAPINE 100MG [Suspect]
     Active Substance: QUETIAPINE
     Indication: PRODUCT USED FOR UNKNOWN INDICATION
     Dosage: 100 MG, UNK
     Route: 065

REACTIONS (4)
  - Nightmare [Unknown]
  - Fear [Unknown]
  - Crying [Unknown]
  - Feeling abnormal [Unknown]
